FAERS Safety Report 4762436-9 (Version None)
Quarter: 2005Q3

REPORT INFORMATION
  Report Type: 
  Country: None (occurrence: None)
  Receive Date: 20050901
  Receipt Date: 20050525
  Transmission Date: 20060218
  Serious: No
  Sender: FDA-Public Use
  Company Number: 200511063BWH

PATIENT
  Age: 68 Year
  Sex: Male

DRUGS (2)
  1. LEVITRA [Suspect]
     Dosage: 20 MG, ONCE, ORAL
     Route: 048
  2. INHALERS [Concomitant]

REACTIONS (1)
  - HEADACHE [None]
